FAERS Safety Report 8046907-8 (Version None)
Quarter: 2012Q1

REPORT INFORMATION
  Report Type: 
  Country: None (occurrence: None)
  Receive Date: 20120116
  Receipt Date: 20120104
  Transmission Date: 20120608
  Serious: No
  Sender: FDA-Public Use
  Company Number: US-ELI_LILLY_AND_COMPANY-US201003007178

PATIENT
  Sex: Female

DRUGS (6)
  1. FORTEO [Suspect]
     Indication: OSTEOPOROSIS
     Dosage: 20 UG, DAILY (1/D)
     Route: 058
     Dates: start: 20100213
  2. VITAMIN D [Concomitant]
     Indication: VITAMIN D DECREASED
     Dosage: 20000 U, DAILY (1/D)
  3. FORTEO [Suspect]
     Dosage: 20 UG, DAILY (1/D)
     Route: 058
  4. FORTEO [Suspect]
     Dosage: 20 UG, QD
     Route: 058
  5. VITAMIN D [Concomitant]
     Dosage: 50000 U, 2/W
  6. FORTEO [Suspect]
     Dosage: 20 UG, QD
     Route: 058

REACTIONS (8)
  - BRONCHITIS VIRAL [None]
  - JOINT STIFFNESS [None]
  - DYSSTASIA [None]
  - DRUG DOSE OMISSION [None]
  - INCREASED APPETITE [None]
  - VITAMIN D DECREASED [None]
  - WEIGHT INCREASED [None]
  - MEDICAL DEVICE REMOVAL [None]
